FAERS Safety Report 5378226-2 (Version None)
Quarter: 2007Q3

REPORT INFORMATION
  Report Type: 
  Country: None (occurrence: None)
  Receive Date: 20070705
  Receipt Date: 20070614
  Transmission Date: 20080115
  Serious: Yes (Other)
  Sender: FDA-Public Use
  Company Number: US-JNJFOC-20070603924

PATIENT
  Age: 35 Year
  Sex: Male

DRUGS (3)
  1. TOPAMAX [Suspect]
     Indication: DRUG USE FOR UNKNOWN INDICATION
     Route: 048
  2. LUVOX [Concomitant]
     Indication: OBSESSIVE-COMPULSIVE DISORDER
  3. CLOZARIL [Concomitant]

REACTIONS (2)
  - EROSIVE OESOPHAGITIS [None]
  - HAEMATEMESIS [None]
